FAERS Safety Report 12582288 (Version 1)
Quarter: 2016Q3

REPORT INFORMATION
  Report Type: Report from Study
  Country: FR (occurrence: FR)
  Receive Date: 20160722
  Receipt Date: 20160722
  Transmission Date: 20161109
  Serious: Yes (Hospitalization)
  Sender: FDA-Public Use
  Company Number: FR-ROCHE-1798493

PATIENT
  Sex: Female

DRUGS (16)
  1. TOCILIZUMAB [Suspect]
     Active Substance: TOCILIZUMAB
     Indication: RHEUMATOID ARTHRITIS
     Route: 065
     Dates: start: 20091112
  2. LASILIX [Concomitant]
     Active Substance: FUROSEMIDE
     Route: 065
  3. LYRICA [Concomitant]
     Active Substance: PREGABALIN
     Route: 065
  4. RITUXIMAB [Suspect]
     Active Substance: RITUXIMAB
     Indication: RHEUMATOID ARTHRITIS
     Dosage: D1, 1 G (D15) ON 30/MAY/2008
     Route: 041
     Dates: start: 20080516
  5. XYZALL [Concomitant]
     Active Substance: LEVOCETIRIZINE DIHYDROCHLORIDE
  6. SEVREDOL [Concomitant]
     Active Substance: MORPHINE
     Route: 065
  7. LEVOTHYROX [Concomitant]
     Active Substance: LEVOTHYROXINE
     Route: 065
  8. ABATACEPT [Concomitant]
     Active Substance: ABATACEPT
     Route: 065
     Dates: start: 20090506
  9. CORTANCYL [Concomitant]
     Active Substance: PREDNISONE
     Route: 065
  10. INEXIUM [Concomitant]
     Active Substance: ESOMEPRAZOLE
     Route: 065
  11. CYMBALTA [Concomitant]
     Active Substance: DULOXETINE HYDROCHLORIDE
     Route: 065
  12. KALEORID [Concomitant]
     Active Substance: POTASSIUM CHLORIDE
     Route: 065
  13. VICTOZA [Concomitant]
     Active Substance: LIRAGLUTIDE
     Route: 065
  14. XYZALL [Concomitant]
     Active Substance: LEVOCETIRIZINE DIHYDROCHLORIDE
  15. CORTANCYL [Concomitant]
     Active Substance: PREDNISONE
     Route: 065
  16. KINERET [Concomitant]
     Active Substance: ANAKINRA

REACTIONS (6)
  - Pneumonia [Unknown]
  - Limb injury [Recovered/Resolved]
  - Renal impairment [Unknown]
  - Post procedural infection [Recovered/Resolved]
  - Lipoma [Unknown]
  - Embolism [Recovered/Resolved]

NARRATIVE: CASE EVENT DATE: 200808
